FAERS Safety Report 6049463-9 (Version None)
Quarter: 2009Q1

REPORT INFORMATION
  Report Type: 
  Country: None (occurrence: None)
  Receive Date: 20090116
  Receipt Date: 20090105
  Transmission Date: 20090719
  Serious: Yes (Hospitalization)
  Sender: FDA-Public Use
  Company Number: CIP09000034

PATIENT
  Age: 5 Year

DRUGS (4)
  1. ASACOL [Suspect]
     Indication: COLITIS ULCERATIVE
     Dosage: 20 MG/KG DAILY, ORAL 30 MG/KG DAILY, ORAL
     Route: 048
     Dates: start: 20040101, end: 20060501
  2. ASACOL [Suspect]
     Indication: COLITIS ULCERATIVE
     Dosage: 20 MG/KG DAILY, ORAL 30 MG/KG DAILY, ORAL
     Route: 048
     Dates: start: 20060501, end: 20060801
  3. ASACOL [Suspect]
     Indication: COLITIS ULCERATIVE
     Dosage: 20 MG/KG DAILY, ORAL 30 MG/KG DAILY, ORAL
     Route: 048
     Dates: start: 20060801
  4. AZATHIOPRINE [Suspect]
     Indication: COLITIS ULCERATIVE
     Dosage: 3 MG/KG DAILY, ORAL
     Route: 048
     Dates: start: 20040101

REACTIONS (6)
  - COLITIS ULCERATIVE [None]
  - DISEASE RECURRENCE [None]
  - DRUG CLEARANCE INCREASED [None]
  - DRUG LEVEL BELOW THERAPEUTIC [None]
  - ENZYME INHIBITION [None]
  - POTENTIATING DRUG INTERACTION [None]
